FAERS Safety Report 18209981 (Version 2)
Quarter: 2020Q3

REPORT INFORMATION
  Report Type: Spontaneous
  Country: AU (occurrence: AU)
  Receive Date: 20200829
  Receipt Date: 20200831
  Transmission Date: 20201103
  Serious: Yes (Hospitalization, Other)
  Sender: FDA-Public Use
  Company Number: AU-CELLTRION INC.-2020AU026123

PATIENT

DRUGS (2)
  1. INFLIXIMAB PFIZER (UNKNOWN) [Suspect]
     Active Substance: INFLIXIMAB
     Indication: COLITIS ULCERATIVE
     Dosage: 5 MG/KG, EVERY 8 WEEKS
     Dates: start: 2015, end: 202006
  2. INFLIXIMAB PFIZER (UNKNOWN) [Suspect]
     Active Substance: INFLIXIMAB
     Dosage: 400 MG, EVERY 8 WEEKS
     Route: 042
     Dates: start: 2016, end: 202008

REACTIONS (10)
  - Therapeutic product effect decreased [Unknown]
  - Platelet count increased [Unknown]
  - Vitamin D deficiency [Unknown]
  - White blood cell count increased [Unknown]
  - Clostridium difficile infection [Recovered/Resolved]
  - Monocyte count decreased [Unknown]
  - Neutrophil count increased [Unknown]
  - Proctitis ulcerative [Unknown]
  - Alanine aminotransferase increased [Unknown]
  - Colitis ulcerative [Recovering/Resolving]

NARRATIVE: CASE EVENT DATE: 20200707
